FAERS Safety Report 10263078 (Version 2)
Quarter: 2014Q2

REPORT INFORMATION
  Report Type: Report from Study
  Country: US (occurrence: US)
  Receive Date: 20140626
  Receipt Date: 20140626
  Transmission Date: 20141212
  Serious: Yes (Other)
  Sender: FDA-Public Use
  Company Number: US-MYLANLABS-2014S1000597

PATIENT
  Age: 51 Year
  Sex: Male

DRUGS (8)
  1. CLOZAPINE TABLETS [Suspect]
     Indication: SCHIZOPHRENIA, PARANOID TYPE
     Dates: end: 20140108
  2. COGENTIN [Concomitant]
     Route: 048
  3. DEPAKOTE [Concomitant]
     Route: 048
  4. TRAZODONE [Concomitant]
     Route: 048
  5. METFORMIN [Concomitant]
     Route: 048
  6. METOPROLOL [Concomitant]
     Route: 048
  7. LISINOPRIL [Concomitant]
     Route: 048
  8. LIPITOR [Concomitant]
     Route: 048

REACTIONS (1)
  - Granulocytopenia [Not Recovered/Not Resolved]
